FAERS Safety Report 15048506 (Version 2)
Quarter: 2018Q3

REPORT INFORMATION
  Report Type: Spontaneous
  Country: DE (occurrence: DE)
  Receive Date: 20180622
  Receipt Date: 20180830
  Transmission Date: 20181010
  Serious: Yes (Hospitalization)
  Sender: FDA-Public Use
  Company Number: DE-TEVA-2018-DE-911242

PATIENT
  Age: 84 Year
  Sex: Female

DRUGS (7)
  1. PANTOPRAZOL [Concomitant]
     Active Substance: PANTOPRAZOLE SODIUM
     Dosage: NK MG, NEED
  2. HYDROCHLOROTHIAZIDE. [Suspect]
     Active Substance: HYDROCHLOROTHIAZIDE
     Indication: PRODUCT USED FOR UNKNOWN INDICATION
     Dosage: 0.5?0?0.5?0
  3. MARCUMAR [Concomitant]
     Active Substance: PHENPROCOUMON
     Dosage: 0?0?0.5?0
  4. MOXONIDINE [Concomitant]
     Active Substance: MOXONIDINE
     Dosage: 0?0?1?0
  5. METAMIZOL [Concomitant]
     Active Substance: METAMIZOLE SODIUM
     Indication: PRODUCT USED FOR UNKNOWN INDICATION
     Dosage: NK MG, NEED
  6. BISOPROLOL [Concomitant]
     Active Substance: BISOPROLOL
     Indication: PRODUCT USED FOR UNKNOWN INDICATION
     Dosage: 0.5?0?0.5?0
  7. AMLODIPINE [Concomitant]
     Active Substance: AMLODIPINE BESYLATE
     Dosage: 0?0?1?0

REACTIONS (1)
  - Gout [Unknown]

NARRATIVE: CASE EVENT DATE: 20170306
